FAERS Safety Report 4783437-0 (Version None)
Quarter: 2005Q3

REPORT INFORMATION
  Report Type: 
  Country: None (occurrence: None)
  Receive Date: 20050929
  Receipt Date: 20050920
  Transmission Date: 20060218
  Serious: Yes (Hospitalization)
  Sender: FDA-Public Use
  Company Number: PHHO2005JP14821

PATIENT
  Age: 50 Year
  Sex: Female

DRUGS (4)
  1. LOCHOL [Suspect]
     Indication: HYPERCHOLESTEROLAEMIA
     Dosage: 20 MG, QD
     Route: 048
     Dates: start: 20020116, end: 20040830
  2. LOCHOL [Suspect]
     Dosage: 30 MG, QD
     Route: 048
     Dates: start: 20040831, end: 20040901
  3. DEPAS [Concomitant]
     Indication: INSOMNIA
     Dates: start: 20030220
  4. HALCION [Concomitant]
     Indication: INSOMNIA
     Dates: start: 20030220

REACTIONS (2)
  - CONDITION AGGRAVATED [None]
  - DIABETES MELLITUS [None]
